FAERS Safety Report 22945696 (Version 3)
Quarter: 2023Q4

REPORT INFORMATION
  Report Type: Spontaneous
  Country: JP (occurrence: JP)
  Receive Date: 20230914
  Receipt Date: 20231025
  Transmission Date: 20240109
  Serious: Yes (Other)
  Sender: FDA-Public Use
  Company Number: JP-MTPC-MTPC2023-0021277

PATIENT
  Age: 56 Year
  Sex: Male

DRUGS (1)
  1. REMICADE [Suspect]
     Active Substance: INFLIXIMAB
     Indication: Crohn^s disease
     Dosage: UNK
     Route: 041
     Dates: start: 20090716, end: 20220609

REACTIONS (1)
  - Rectal cancer [Not Recovered/Not Resolved]
